FAERS Safety Report 22028562 (Version 1)
Quarter: 2023Q1

REPORT INFORMATION
  Report Type: Spontaneous
  Country: US (occurrence: US)
  Receive Date: 20230223
  Receipt Date: 20230223
  Transmission Date: 20230417
  Serious: Yes (Other)
  Sender: FDA-Public Use
  Company Number: US-ABBVIE-4315199

PATIENT
  Age: 30 Year
  Sex: Male

DRUGS (4)
  1. KALETRA [Suspect]
     Active Substance: LOPINAVIR\RITONAVIR
     Indication: HIV infection
     Route: 048
     Dates: start: 20031201, end: 20090301
  2. ATRIPLA [Suspect]
     Active Substance: EFAVIRENZ\EMTRICITABINE\TENOFOVIR DISOPROXIL FUMARATE
     Indication: HIV infection
     Route: 048
     Dates: start: 20100628, end: 20160101
  3. VIREAD [Suspect]
     Active Substance: TENOFOVIR DISOPROXIL FUMARATE
     Indication: HIV infection
     Route: 065
     Dates: start: 200312, end: 201903
  4. TRUVADA [Suspect]
     Active Substance: EMTRICITABINE\TENOFOVIR DISOPROXIL FUMARATE
     Indication: HIV infection
     Route: 048
     Dates: start: 201001, end: 201006

REACTIONS (13)
  - Renal injury [Unknown]
  - Skeletal injury [Unknown]
  - Foot fracture [Unknown]
  - Renal failure [Unknown]
  - Wrist fracture [Unknown]
  - Bone loss [Unknown]
  - Fracture [Unknown]
  - Tooth loss [Unknown]
  - Necrosis [Unknown]
  - Bone density decreased [Unknown]
  - Osteoporosis [Unknown]
  - Blood creatinine increased [Unknown]
  - Chronic kidney disease [Unknown]

NARRATIVE: CASE EVENT DATE: 20041001
